FAERS Safety Report 17678027 (Version 1)
Quarter: 2020Q2

REPORT INFORMATION
  Report Type: Report from Study
  Country: None (occurrence: DE)
  Receive Date: 20200417
  Receipt Date: 20200417
  Transmission Date: 20200714
  Serious: Yes (Other)
  Sender: FDA-Public Use
  Company Number: DE-ABBVIE-20K-062-3361708-00

PATIENT
  Sex: Female

DRUGS (1)
  1. HUMIRA [Suspect]
     Active Substance: ADALIMUMAB
     Indication: UVEITIS
     Route: 058

REACTIONS (9)
  - Mental impairment [Unknown]
  - Eye opacity [Unknown]
  - Hypertension [Not Recovered/Not Resolved]
  - Adenovirus infection [Unknown]
  - Rhinorrhoea [Unknown]
  - Abdominal pain [Unknown]
  - Conjunctivitis [Unknown]
  - Fatigue [Unknown]
  - Cough [Unknown]
